FAERS Safety Report 8304677-X (Version None)
Quarter: 2012Q2

REPORT INFORMATION
  Report Type: 
  Country: None (occurrence: None)
  Receive Date: 20120423
  Receipt Date: 20120418
  Transmission Date: 20120825
  Serious: Yes (Death, Hospitalization, Other)
  Sender: FDA-Public Use
  Company Number: PHHY2012HU031431

PATIENT
  Age: 61 Year
  Sex: Female

DRUGS (7)
  1. FUROSEMIDE [Concomitant]
  2. FRAXIPARINE [Concomitant]
  3. AFINITOR [Suspect]
     Indication: METASTATIC RENAL CELL CARCINOMA
     Dosage: 10 MG, DAILY
     Route: 048
     Dates: start: 20111222, end: 20120103
  4. AFINITOR [Suspect]
     Dosage: 5 MG DAILY
     Route: 048
     Dates: start: 20120110
  5. SPIRONOLACTONE [Concomitant]
  6. PANTOPRAZOLE [Concomitant]
  7. MEDROL [Concomitant]

REACTIONS (18)
  - NEOPLASM MALIGNANT [None]
  - CREPITATIONS [None]
  - COUGH [None]
  - PLEURAL EFFUSION [None]
  - HYPONATRAEMIA [None]
  - LUNG INFILTRATION [None]
  - PNEUMONITIS [None]
  - FATIGUE [None]
  - HYPERKALAEMIA [None]
  - CARDIAC FAILURE CONGESTIVE [None]
  - CONDITION AGGRAVATED [None]
  - BLOOD IRON DECREASED [None]
  - PERICARDIAL EFFUSION [None]
  - DYSPNOEA [None]
  - CHEST DISCOMFORT [None]
  - NEOPLASM PROGRESSION [None]
  - PNEUMONIA [None]
  - WHEEZING [None]
